FAERS Safety Report 20829957 (Version 2)
Quarter: 2022Q4

REPORT INFORMATION
  Report Type: Report from Study
  Country: US (occurrence: US)
  Receive Date: 20220514
  Receipt Date: 20221014
  Transmission Date: 20230113
  Serious: Yes (Hospitalization)
  Sender: FDA-Public Use
  Company Number: US-ABBVIE-22K-163-4393477-00

PATIENT
  Age: 72 Year
  Sex: Female
  Weight: 63.502 kg

DRUGS (4)
  1. HUMIRA [Suspect]
     Active Substance: ADALIMUMAB
     Indication: Rheumatoid arthritis
     Dosage: CITRATE FREE  START DATE TEXT 2021/2022
     Route: 058
  2. FOLIC ACID [Concomitant]
     Active Substance: FOLIC ACID
     Indication: Product used for unknown indication
  3. METHOTREXATE [Concomitant]
     Active Substance: METHOTREXATE
     Indication: Product used for unknown indication
     Route: 065
  4. Lisinopril /HCTZ [Concomitant]
     Indication: Product used for unknown indication
     Route: 065

REACTIONS (4)
  - Encephalopathy [Recovered/Resolved]
  - Encephalopathy [Recovered/Resolved]
  - Amnesia [Unknown]
  - Amnesia [Unknown]

NARRATIVE: CASE EVENT DATE: 20220403
